FAERS Safety Report 19991521 (Version 1)
Quarter: 2021Q4

REPORT INFORMATION
  Report Type: Spontaneous
  Country: US (occurrence: US)
  Receive Date: 20211025
  Receipt Date: 20211025
  Transmission Date: 20220303
  Serious: No
  Sender: FDA-Public Use
  Company Number: US-ELI_LILLY_AND_COMPANY-US202110007238

PATIENT
  Age: 60 Year
  Sex: Female

DRUGS (2)
  1. EMGALITY [Suspect]
     Active Substance: GALCANEZUMAB-GNLM
     Indication: Cluster headache
     Dosage: 300 MG, SINGLE, LOADING DOSE
     Route: 065
     Dates: start: 20211015
  2. SUMATRIPTAN [Suspect]
     Active Substance: SUMATRIPTAN
     Indication: Product used for unknown indication
     Dosage: UNK UNK, UNKNOWN
     Route: 065

REACTIONS (6)
  - Migraine [Not Recovered/Not Resolved]
  - Nausea [Unknown]
  - Pain [Unknown]
  - Visual impairment [Unknown]
  - Injection site pain [Unknown]
  - Underdose [Unknown]

NARRATIVE: CASE EVENT DATE: 20211015
